FAERS Safety Report 4763943-5 (Version None)
Quarter: 2005Q3

REPORT INFORMATION
  Report Type: 
  Country: None (occurrence: None)
  Receive Date: 20050906
  Receipt Date: 20050824
  Transmission Date: 20060218
  Serious: Yes (Death, Hospitalization)
  Sender: FDA-Public Use
  Company Number: EM2005-0417

PATIENT
  Age: 51 Year
  Sex: Female

DRUGS (12)
  1. PROLEUKIN [Suspect]
     Indication: MALIGNANT MELANOMA
     Dosage: 52 MIU, INTRAVENOUS; 32 MIU; 16 MIU
     Route: 042
     Dates: start: 20050628, end: 20050628
  2. PROLEUKIN [Suspect]
     Indication: MALIGNANT MELANOMA
     Dosage: 52 MIU, INTRAVENOUS; 32 MIU; 16 MIU
     Route: 042
     Dates: start: 20050629, end: 20050629
  3. PROLEUKIN [Suspect]
     Indication: MALIGNANT MELANOMA
     Dosage: 52 MIU, INTRAVENOUS; 32 MIU; 16 MIU
     Route: 042
     Dates: start: 20050518, end: 20050630
  4. INTRON A [Suspect]
     Indication: MALIGNANT MELANOMA
     Dosage: 9 MIU, QD, SUBCUTAN.
     Route: 058
     Dates: start: 20050518, end: 20050630
  5. INTRON A [Suspect]
     Indication: MALIGNANT MELANOMA
     Dosage: 9 MIU, QD, SUBCUTAN.
     Route: 058
     Dates: start: 20050628
  6. SOLU-MEDROL [Concomitant]
  7. VINBLASTINE SULFATE [Suspect]
     Indication: MALIGNANT MELANOMA
     Dosage: 2.1 MG, QD, INTRAVENOUS
     Route: 042
     Dates: start: 20050518, end: 20050630
  8. VINBLASTINE SULFATE [Suspect]
     Indication: MALIGNANT MELANOMA
     Dosage: 2.1 MG, QD, INTRAVENOUS
     Route: 042
     Dates: start: 20050628
  9. CISPLATIN [Suspect]
     Indication: MALIGNANT MELANOMA
     Dosage: 35 MG, QD, INTRAVENOUS
     Route: 042
     Dates: start: 20050518, end: 20050630
  10. CISPLATIN [Suspect]
     Indication: MALIGNANT MELANOMA
     Dosage: 35 MG, QD, INTRAVENOUS
     Route: 042
     Dates: start: 20050628
  11. PLATINOL [Suspect]
     Indication: MALIGNANT MELANOMA
     Dosage: 35 MG, INTRAVENOUS
     Route: 042
  12. TEMODAR [Suspect]
     Indication: MALIGNANT MELANOMA
     Dosage: 260 MG, ORAL
     Route: 048
     Dates: start: 20050628

REACTIONS (13)
  - ACIDOSIS [None]
  - DISSEMINATED INTRAVASCULAR COAGULATION [None]
  - HAEMOGLOBIN DECREASED [None]
  - HYPOTENSION [None]
  - KLEBSIELLA SEPSIS [None]
  - LEUKOPENIA [None]
  - LUNG INFILTRATION [None]
  - MYOCARDIAL INFARCTION [None]
  - NAUSEA [None]
  - SEPTIC SHOCK [None]
  - THROMBOCYTOPENIA [None]
  - TREMOR [None]
  - VOMITING [None]
